FAERS Safety Report 8214369-3 (Version None)
Quarter: 2012Q1

REPORT INFORMATION
  Report Type: 
  Country: None (occurrence: None)
  Receive Date: 20120316
  Receipt Date: 20120306
  Transmission Date: 20120608
  Serious: Yes (Hospitalization)
  Sender: FDA-Public Use
  Company Number: AR-JNJFOC-20110912278

PATIENT
  Sex: Female
  Weight: 68.2 kg

DRUGS (11)
  1. FOLIC ACID [Concomitant]
     Route: 048
     Dates: start: 20100823, end: 20101008
  2. FOLIC ACID [Concomitant]
     Route: 048
     Dates: start: 20101028
  3. GOLIMUMAB [Suspect]
     Route: 058
     Dates: start: 20070416
  4. ALL OTHER THERAPEUTIC PRODUCT [Concomitant]
     Route: 048
     Dates: start: 20110610
  5. HALOPERIDOL [Concomitant]
     Route: 048
     Dates: start: 20080402
  6. CLONAZEPAM [Concomitant]
     Route: 048
     Dates: start: 20100627
  7. GOLIMUMAB [Suspect]
     Indication: RHEUMATOID ARTHRITIS
     Route: 058
     Dates: start: 20110901
  8. METHOTREXATE [Concomitant]
     Route: 048
     Dates: start: 20101028
  9. METHOTREXATE [Concomitant]
     Route: 048
     Dates: start: 20100823, end: 20101008
  10. DIAZEPAM [Concomitant]
     Route: 048
     Dates: start: 20080402
  11. METHOTREXATE [Suspect]
     Indication: RHEUMATOID ARTHRITIS
     Route: 048
     Dates: start: 20070416, end: 20110922

REACTIONS (3)
  - METRORRHAGIA [None]
  - MATERNAL EXPOSURE DURING PREGNANCY [None]
  - GESTATIONAL DIABETES [None]
